FAERS Safety Report 15035015 (Version 1)
Quarter: 2018Q2

REPORT INFORMATION
  Report Type: Spontaneous
  Country: DE (occurrence: DE)
  Receive Date: 20180620
  Receipt Date: 20180620
  Transmission Date: 20180711
  Serious: Yes (Hospitalization)
  Sender: FDA-Public Use
  Company Number: DE-TEVA-2018-DE-911717

PATIENT
  Age: 84 Year
  Sex: Female

DRUGS (14)
  1. KALIUM [Concomitant]
     Active Substance: POTASSIUM CHLORIDE
     Dosage: NK MG, NK
  2. IPRATROPIUM BROMIDE. [Concomitant]
     Active Substance: IPRATROPIUM BROMIDE
     Dosage: 20-20-20-20, HUB
     Route: 055
  3. PREGABALIN. [Concomitant]
     Active Substance: PREGABALIN
     Dosage: 0-0-0-1
  4. INSULIN HUMAN [Concomitant]
     Active Substance: INSULIN HUMAN
     Dosage: NK IE, NACH BZ
  5. ACETYLSALICYLSAEURE [Suspect]
     Active Substance: ASPIRIN
     Dosage: , 0-1-0-0
     Route: 065
  6. PANTOPRAZOL [Concomitant]
     Active Substance: PANTOPRAZOLE SODIUM
     Dosage: 1-0-0-0
  7. SALBUTAMOL [Concomitant]
     Active Substance: ALBUTEROL
     Dosage: 4 X 5, TROPFEN
     Route: 055
  8. ALLOPURINOL. [Concomitant]
     Active Substance: ALLOPURINOL
     Dosage: 0-0-1-0
  9. METOPROLOL. [Suspect]
     Active Substance: METOPROLOL
     Dosage: 1-0-0.5-0
     Route: 065
  10. AMLODIPINE [Concomitant]
     Active Substance: AMLODIPINE BESYLATE
     Dosage: 0-1-0-0
  11. BERLINSULIN H BASAL [Concomitant]
     Active Substance: INSULIN HUMAN
     Dosage: NK IE, 24-0-0-36
  12. RAMIPRIL. [Concomitant]
     Active Substance: RAMIPRIL
     Dosage: 1-0-0.5-0
  13. SIMVASTATIN. [Concomitant]
     Active Substance: SIMVASTATIN
     Dosage: 0-0-1-0
  14. TORASEMID [Concomitant]
     Active Substance: TORSEMIDE
     Dosage: 1-1-0-0

REACTIONS (3)
  - Anaemia [Unknown]
  - Drug prescribing error [Unknown]
  - Dyspnoea [Unknown]
